FAERS Safety Report 25872831 (Version 1)
Quarter: 2025Q4

REPORT INFORMATION
  Report Type: Spontaneous
  Country: GB (occurrence: GB)
  Receive Date: 20251002
  Receipt Date: 20251002
  Transmission Date: 20260118
  Serious: Yes (Death, Disabling, Other)
  Sender: MYLAN
  Company Number: None

PATIENT
  Age: 82 Year
  Sex: Male
  Weight: 85 kg

DRUGS (24)
  1. SERTRALINE HYDROCHLORIDE [Suspect]
     Active Substance: SERTRALINE HYDROCHLORIDE
     Indication: Depressed mood
     Dosage: 50 MILLIGRAM, QD (TAKE ONE DAILY)
     Dates: start: 20250711, end: 20250731
  2. TRIMETHOPRIM [Concomitant]
     Active Substance: TRIMETHOPRIM
     Indication: Ill-defined disorder
     Dosage: 1 DOSAGE FORM (TAKE ONE TWICE DAILY FOR 3 DAYS, THEN ONE TABLE)
     Dates: start: 20250711, end: 20250714
  3. MUPIROCIN [Concomitant]
     Active Substance: MUPIROCIN
     Indication: Ill-defined disorder
     Dosage: 3 DOSAGE FORM, QD (APPLY 3 TIMES/DAY)
     Dates: start: 20250717, end: 20250722
  4. FOSFOMYCIN [Concomitant]
     Active Substance: FOSFOMYCIN
     Indication: Ill-defined disorder
     Dosage: 1 DOSAGE FORM (ONE TAKEN ON AN EMPTY STOMACH (ABOUT 2-3 HOURS)
     Dates: start: 20250717, end: 20250718
  5. ACETAMINOPHEN [Concomitant]
     Active Substance: ACETAMINOPHEN
     Indication: Ill-defined disorder
     Dosage: UNK UNK, PRN (TAKE 1 OR 2 UPTO 4 TIMES/DAY WHEN NEEDED)
     Dates: start: 20250415, end: 20250916
  6. BUMETANIDE [Concomitant]
     Active Substance: BUMETANIDE
     Indication: Ill-defined disorder
     Dosage: 3 DOSAGE FORM, AM (TAKE THREE EACH MORNING - CAN BE DISSOLVED IN S)
     Dates: start: 20250602
  7. Conotrane [Concomitant]
     Indication: Ill-defined disorder
     Dosage: UNK UNK, PRN (APPLY AS NEEDED)
  8. Zerobase [Concomitant]
     Indication: Ill-defined disorder
     Dosage: UNK UNK, PRN (APPLY WHEN NEEDED AS A MOISTURISER)
  9. CLOTRIMAZOLE [Concomitant]
     Active Substance: CLOTRIMAZOLE
     Indication: Ill-defined disorder
     Dosage: UNK UNK, QD (APPLY TWO TO THREE TIMES A DAY, TO TREAT FUNGAL)
     Dates: start: 20240607, end: 20250919
  10. POLYETHYLENE GLYCOL 3350\POTASSIUM CHLORIDE\SODIUM BICARBONATE\SODIUM [Concomitant]
     Active Substance: POLYETHYLENE GLYCOL 3350\POTASSIUM CHLORIDE\SODIUM BICARBONATE\SODIUM CHLORIDE
     Indication: Ill-defined disorder
     Dosage: UNK UNK, QD (ONE TO TWO SACHETS DAILY WHEN REQUIRED)
     Dates: start: 20240607, end: 20250919
  11. NITROGLYCERIN [Concomitant]
     Active Substance: NITROGLYCERIN
     Indication: Ill-defined disorder
     Dosage: UNK (SPRAY ONE OR TWO DOSES UNDER THE TONGUE AND CLO)
  12. DIGOXIN [Concomitant]
     Active Substance: DIGOXIN
     Indication: Ill-defined disorder
     Dosage: 1 DOSAGE FORM, QD (TAKE ONE DAILY)
     Dates: start: 20250113, end: 20250916
  13. FINASTERIDE [Concomitant]
     Active Substance: FINASTERIDE
     Indication: Ill-defined disorder
     Dosage: 1 DOSAGE FORM, QD (TAKE ONE DAILY)
     Dates: start: 20250113, end: 20250722
  14. GLICLAZIDE [Concomitant]
     Active Substance: GLICLAZIDE
     Indication: Ill-defined disorder
     Dosage: 1 DOSAGE FORM, AM (TAKE ONE TABLET WITH BREAKFAST TO CONTROL DIABETES)
     Dates: start: 20250113, end: 20250916
  15. DILTIAZEM HYDROCHLORIDE [Concomitant]
     Active Substance: DILTIAZEM HYDROCHLORIDE
     Indication: Ill-defined disorder
     Dosage: 1 DOSAGE FORM, BID (TAKE ONE TABLETS TWICE DAILY)
     Dates: start: 20250113, end: 20250916
  16. MIRTAZAPINE [Concomitant]
     Active Substance: MIRTAZAPINE
     Indication: Ill-defined disorder
     Dosage: 1 DOSAGE FORM, PM (TAKE ONE IN EVENING)
     Dates: start: 20250128, end: 20250919
  17. GLYCOPYRROLATE [Concomitant]
     Active Substance: GLYCOPYRROLATE
     Indication: Ill-defined disorder
     Dosage: 200 MICROGRAM, Q4H (200MCG S/C EVERY 4 HOURS OR 600MCG TO 1200MCG V...)
     Dates: start: 20250515, end: 20250919
  18. HALOPERIDOL [Concomitant]
     Active Substance: HALOPERIDOL
     Indication: Ill-defined disorder
     Dosage: UNK (0.5 - 1MG SC IMMEDIATELY THEN 1.5MG/24H VIA SYR)
  19. MIDAZOLAM [Concomitant]
     Active Substance: MIDAZOLAM
     Indication: Ill-defined disorder
     Dosage: UNK (2.5MG TO 5MG S/C EVERY 1 HOUR IF NEEDED OR 5MG)
  20. OXYCODONE HYDROCHLORIDE [Concomitant]
     Active Substance: OXYCODONE HYDROCHLORIDE
     Indication: Ill-defined disorder
     Dosage: UNK UNK, PRN (JUST IN CASE PRESCRIPTION - 1-2MG WHEN REQUIRED)
     Dates: start: 20250515, end: 20250919
  21. WATER FOR INJECTION [Concomitant]
     Active Substance: WATER
     Indication: Ill-defined disorder
     Dosage: UNK (USE AS DIRECTED FOR JIC MEDS)
     Dates: start: 20250515, end: 20250919
  22. DOCUSATE SODIUM [Concomitant]
     Active Substance: DOCUSATE SODIUM
     Indication: Ill-defined disorder
     Dosage: 1 DOSAGE FORM, BID (TAKE ONE TWICE A DAY)
     Dates: start: 20250617, end: 20250916
  23. Balneum [Concomitant]
     Indication: Ill-defined disorder
     Dosage: 2 DOSAGE FORM, QD (APPLY TWICE DAILY)
     Dates: start: 20250617, end: 20250919
  24. BUPRENORPHINE [Concomitant]
     Active Substance: BUPRENORPHINE
     Indication: Ill-defined disorder
     Dosage: 1 DOSAGE FORM, QW (APPY ONE PATCH EACH WEEK, AND REMOVE OLD PATCH)
     Dates: start: 20250916, end: 20250919

REACTIONS (6)
  - Death [Fatal]
  - Dysarthria [Unknown]
  - Somnolence [Not Recovered/Not Resolved]
  - Dysphagia [Unknown]
  - Fall [Unknown]
  - Balance disorder [Unknown]

NARRATIVE: CASE EVENT DATE: 20250716
